FAERS Safety Report 6337491-5 (Version None)
Quarter: 2009Q3

REPORT INFORMATION
  Report Type: 
  Country: None (occurrence: None)
  Receive Date: 20090902
  Receipt Date: 20090828
  Transmission Date: 20100115
  Serious: Yes (Other)
  Sender: FDA-Public Use
  Company Number: US-ROXANE LABORATORIES, INC.-2009-RO-00878RO

PATIENT

DRUGS (1)
  1. METHADONE [Suspect]
     Indication: CANCER PAIN

REACTIONS (2)
  - CAUDA EQUINA SYNDROME [None]
  - DRUG INEFFECTIVE [None]
